FAERS Safety Report 9942473 (Version 1)
Quarter: 2014Q1

REPORT INFORMATION
  Report Type: Report from Study
  Country: US (occurrence: US)
  Receive Date: 20140303
  Receipt Date: 20140303
  Transmission Date: 20141002
  Serious: No
  Sender: FDA-Public Use
  Company Number: US-ABBVIE-13P-163-1043984-00

PATIENT
  Age: 61 Year
  Sex: Female

DRUGS (8)
  1. HUMIRA [Suspect]
     Indication: SCLERODERMA
     Dates: start: 2002
  2. PROCARDIA [Concomitant]
     Indication: CARDIAC DISORDER
     Dosage: 30 MG DAILY
  3. LIPITOR [Concomitant]
     Indication: BLOOD CHOLESTEROL INCREASED
     Dosage: 20 MG DAILY
  4. MVI [Concomitant]
     Indication: PRODUCT USED FOR UNKNOWN INDICATION
     Dosage: DAILY
  5. CALCIUM [Concomitant]
     Indication: PRODUCT USED FOR UNKNOWN INDICATION
     Dosage: DAILY
  6. ACIPHEX [Concomitant]
     Indication: GASTRIC DISORDER
     Dosage: DAILY
  7. PLAVIX [Concomitant]
     Indication: CARDIAC DISORDER
     Dosage: DAILY
  8. ASA [Concomitant]
     Indication: PROPHYLAXIS
     Dosage: 81 MG DAILY

REACTIONS (1)
  - Scleroderma [Not Recovered/Not Resolved]
